FAERS Safety Report 20096487 (Version 1)
Quarter: 2021Q4

REPORT INFORMATION
  Report Type: Spontaneous
  Country: US (occurrence: None)
  Receive Date: 20211119
  Receipt Date: 20211119
  Transmission Date: 20220303
  Serious: Yes (Death)
  Sender: FDA-Public Use
  Company Number: None

PATIENT
  Age: 85 Year
  Sex: Male
  Weight: 54.9 kg

DRUGS (2)
  1. ZARXIO [Suspect]
     Active Substance: FILGRASTIM-SNDZ
     Indication: Myelodysplastic syndrome
     Dosage: OTHER FREQUENCY : 3 TIMES WEEKLY;?
     Route: 058
     Dates: start: 20210708, end: 20211031
  2. DECITABINE [Suspect]
     Active Substance: DECITABINE
     Indication: Myelodysplastic syndrome
     Dosage: FREQUENCY : DAILY;?
     Route: 042
     Dates: start: 20210318, end: 20211031

REACTIONS (1)
  - Death [None]

NARRATIVE: CASE EVENT DATE: 20211031
